FAERS Safety Report 10528854 (Version 1)
Quarter: 2014Q4

REPORT INFORMATION
  Report Type: Spontaneous
  Country: CN (occurrence: CN)
  Receive Date: 20141020
  Receipt Date: 20141020
  Transmission Date: 20150528
  Serious: Yes (Hospitalization)
  Sender: FDA-Public Use
  Company Number: CN-PFIZER INC-2014284799

PATIENT
  Age: 58 Year
  Sex: Male
  Weight: 75 kg

DRUGS (2)
  1. CELEBREX [Suspect]
     Active Substance: CELECOXIB
     Indication: PAIN
     Dosage: 0.2 G, 6 TIMES DAILY
     Route: 048
     Dates: start: 20140506, end: 20140507
  2. FLUPIRTINE MALEATE [Suspect]
     Active Substance: FLUPIRTINE MALEATE
     Indication: PAIN
     Dosage: 0.2 G, 7 TIMES DAILY
     Route: 048
     Dates: start: 20140506, end: 20140507

REACTIONS (5)
  - Logorrhoea [Recovered/Resolved]
  - Incorrect dose administered [Recovered/Resolved]
  - Mental impairment [Recovered/Resolved]
  - Hepatic function abnormal [Recovered/Resolved]
  - Dysphoria [Recovered/Resolved]

NARRATIVE: CASE EVENT DATE: 20140507
